FAERS Safety Report 25707110 (Version 1)
Quarter: 2025Q3

REPORT INFORMATION
  Report Type: Spontaneous
  Country: GB (occurrence: GB)
  Receive Date: 20250820
  Receipt Date: 20250820
  Transmission Date: 20251021
  Serious: Yes (Death, Life-Threatening, Hospitalization, Other)
  Sender: ELI LILLY AND COMPANY
  Company Number: None

PATIENT

DRUGS (1)
  1. MOUNJARO [Suspect]
     Active Substance: TIRZEPATIDE
     Indication: Weight control
     Route: 065

REACTIONS (7)
  - Death [Fatal]
  - Hypoglycaemia [Unknown]
  - Haemorrhage [Unknown]
  - Loss of consciousness [Unknown]
  - Sepsis [Unknown]
  - Glycosylated haemoglobin decreased [Unknown]
  - Urinary tract infection [Unknown]
